FAERS Safety Report 23008255 (Version 2)
Quarter: 2023Q4

REPORT INFORMATION
  Report Type: Spontaneous
  Country: US (occurrence: US)
  Receive Date: 20230929
  Receipt Date: 20231002
  Transmission Date: 20240110
  Serious: Yes (Other)
  Sender: FDA-Public Use
  Company Number: US-PFIZER INC-PV202300161575

PATIENT
  Age: 27 Year
  Sex: Male

DRUGS (6)
  1. METHOTREXATE SODIUM [Suspect]
     Active Substance: METHOTREXATE SODIUM
     Indication: Cutaneous sarcoidosis
     Dosage: 10 MG, WEEKLY
  2. METHOTREXATE SODIUM [Suspect]
     Active Substance: METHOTREXATE SODIUM
     Indication: Immunosuppressant drug therapy
  3. HYDROXYCHLOROQUINE [Suspect]
     Active Substance: HYDROXYCHLOROQUINE
     Indication: Cutaneous sarcoidosis
     Dosage: 400 MG, DAILY
  4. HYDROXYCHLOROQUINE [Suspect]
     Active Substance: HYDROXYCHLOROQUINE
     Indication: Immunosuppressant drug therapy
  5. PREDNISONE [Suspect]
     Active Substance: PREDNISONE
     Indication: Cutaneous sarcoidosis
     Dosage: 40 MG, DAILY
     Route: 048
  6. PREDNISONE [Suspect]
     Active Substance: PREDNISONE
     Indication: Immunosuppressant drug therapy

REACTIONS (3)
  - Leprosy [Recovered/Resolved]
  - Mycobacterium haemophilum infection [Recovered/Resolved]
  - Off label use [Unknown]
